FAERS Safety Report 24529287 (Version 2)
Quarter: 2024Q4

REPORT INFORMATION
  Report Type: Spontaneous
  Country: SA (occurrence: SA)
  Receive Date: 20241021
  Receipt Date: 20241022
  Transmission Date: 20250115
  Serious: Yes (Death)
  Sender: NOVARTIS
  Company Number: SA-002147023-NVSC2024SA204833

PATIENT
  Age: 67 Year
  Sex: Female

DRUGS (1)
  1. KISQALI [Suspect]
     Active Substance: RIBOCICLIB
     Indication: Breast cancer metastatic
     Dosage: UNK
     Route: 065

REACTIONS (1)
  - Death [Fatal]
